FAERS Safety Report 6910708-1 (Version None)
Quarter: 2010Q3

REPORT INFORMATION
  Report Type: 
  Country: None (occurrence: None)
  Receive Date: 20100806
  Receipt Date: 20100726
  Transmission Date: 20110219
  Serious: Yes (Other)
  Sender: FDA-Public Use
  Company Number: US-JNJFOC-20100707993

PATIENT
  Sex: Male

DRUGS (2)
  1. REMICADE [Suspect]
     Indication: PSORIATIC ARTHROPATHY
     Route: 042
  2. REMICADE [Suspect]
     Dosage: FOR 1 YEAR, 7 YEARS PRIOR TO THIS REPORT
     Route: 042

REACTIONS (4)
  - COLD SWEAT [None]
  - DYSPNOEA [None]
  - INFUSION RELATED REACTION [None]
  - MUSCLE SPASMS [None]
